FAERS Safety Report 4480832-4 (Version None)
Quarter: 2004Q4

REPORT INFORMATION
  Report Type: 
  Country: None (occurrence: None)
  Receive Date: 20041021
  Receipt Date: 20041011
  Transmission Date: 20050328
  Serious: Yes (Hospitalization)
  Sender: FDA-Public Use
  Company Number: FR-ABBOTT-04P-056-0276973-00

PATIENT
  Age: 79 Year
  Sex: Male

DRUGS (9)
  1. DEPAKENE [Suspect]
     Indication: TREMOR
     Route: 048
     Dates: start: 20021230, end: 20030102
  2. ZOLPIDEM TARTRATE [Suspect]
     Indication: DRUG USE FOR UNKNOWN INDICATION
     Route: 048
     Dates: end: 20030102
  3. CLOMIPRAMINE HCL [Suspect]
     Indication: DRUG USE FOR UNKNOWN INDICATION
     Route: 048
     Dates: end: 20030102
  4. AMITRIPTYLINE HYDROCHLORIDE [Suspect]
     Indication: DRUG USE FOR UNKNOWN INDICATION
     Route: 048
     Dates: end: 20030102
  5. PRAZEPAM [Suspect]
     Indication: DRUG USE FOR UNKNOWN INDICATION
     Route: 048
     Dates: end: 20030102
  6. FUROSEMIDE [Concomitant]
     Indication: CARDIAC FAILURE
     Route: 048
     Dates: end: 20030102
  7. FUROSEMIDE [Concomitant]
     Route: 048
     Dates: start: 20030103
  8. CEFTRIAXONE SODIUM [Concomitant]
     Indication: BRONCHITIS ACUTE
     Route: 030
     Dates: start: 20021230, end: 20030102
  9. AMOXICILLIN+CLAVULANIC ACID [Concomitant]
     Indication: BRONCHITIS ACUTE
     Dates: start: 20040103

REACTIONS (9)
  - BRONCHITIS [None]
  - DEHYDRATION [None]
  - DEPRESSED LEVEL OF CONSCIOUSNESS [None]
  - FALL [None]
  - HAEMATOMA [None]
  - HYPOXIA [None]
  - PROTHROMBIN TIME SHORTENED [None]
  - RENAL FAILURE [None]
  - SOMNOLENCE [None]
